FAERS Safety Report 16810294 (Version 6)
Quarter: 2019Q4

REPORT INFORMATION
  Report Type: Spontaneous
  Country: US (occurrence: US)
  Receive Date: 20190916
  Receipt Date: 20191205
  Transmission Date: 20200122
  Serious: Yes (Other)
  Sender: FDA-Public Use
  Company Number: US-PFIZER INC-2018091825

PATIENT
  Age: 53 Year
  Sex: Female
  Weight: 172 kg

DRUGS (25)
  1. FENOFIBRATE. [Concomitant]
     Active Substance: FENOFIBRATE
     Dosage: 145 MG, DAILY
     Dates: start: 20171103
  2. VITAMIN D [Concomitant]
     Active Substance: VITAMIN D NOS
     Dosage: 50000 IU, WEEKLY
     Dates: start: 20180104
  3. CEFDINIR. [Concomitant]
     Active Substance: CEFDINIR
     Indication: BRONCHITIS
     Dosage: 300 MG, 2X/DAY
     Dates: start: 20180109
  4. LYRICA [Suspect]
     Active Substance: PREGABALIN
     Dosage: 300 MG, AS NEEDED (ONE CAP, TWICE A DAY)
     Route: 048
  5. XANAX [Concomitant]
     Active Substance: ALPRAZOLAM
     Dosage: 1 MG, 2X/DAY
     Dates: start: 20190103
  6. LORATADINE. [Concomitant]
     Active Substance: LORATADINE
     Dosage: 10 MG, DAILY
     Dates: start: 20180104
  7. LYRICA [Suspect]
     Active Substance: PREGABALIN
     Indication: DIABETIC NEUROPATHY
     Dosage: 300 MG, 2X/DAY
     Dates: start: 20190127
  8. XANAX [Concomitant]
     Active Substance: ALPRAZOLAM
     Indication: ANXIETY DISORDER
     Dosage: 1 MG, 4X/DAY
     Dates: start: 20180109
  9. OMEPRAZOLE. [Concomitant]
     Active Substance: OMEPRAZOLE
     Dosage: 20 MG, 2X/DAY
     Dates: start: 20171103
  10. ESCITALOPRAM OXALATE. [Concomitant]
     Active Substance: ESCITALOPRAM OXALATE
     Dosage: 20 MG, 1X/DAY, (AT BEDTIME)
     Route: 048
  11. LOTRIMIN AF ANTIFUNGAL [Concomitant]
     Active Substance: MICONAZOLE NITRATE
     Indication: BODY TINEA
     Dosage: UNK, 2X/DAY (1 APPLICATION TWICE DAILY, 15 GRAM)
     Dates: start: 20171108
  12. VENTOLIN HFA [Concomitant]
     Active Substance: ALBUTEROL SULFATE
     Indication: DYSPNOEA
     Dosage: UNK, AS NEEDED  (108 (90 BASE) MCG/ACT, 2 PUFFS, PUFF EVERY FOUR-SIX HOURS PRN)
     Dates: start: 20180104
  13. PERCOCET [Concomitant]
     Active Substance: ACETAMINOPHEN\OXYCODONE HYDROCHLORIDE
     Dosage: UNK, 4X/DAY, [OXYCODONE HYDROCHLORIDE 10MG]-[PARACETAMOL 325MG]
     Route: 048
  14. BISOPROLOL FUMARATE. [Concomitant]
     Active Substance: BISOPROLOL FUMARATE
     Dosage: 5 MG, DAILY
     Route: 048
  15. LYRICA [Suspect]
     Active Substance: PREGABALIN
     Indication: NEUROPATHY PERIPHERAL
     Dosage: 300 MG, 2X/DAY
  16. LYRICA [Suspect]
     Active Substance: PREGABALIN
     Dosage: 300 MG, 3X/DAY
  17. LYRICA [Suspect]
     Active Substance: PREGABALIN
     Indication: LUMBOSACRAL RADICULOPATHY
     Dosage: 300 MG, 2X/DAY
     Dates: start: 20180109
  18. IPRATROPIUM/ALBUTEROL [Concomitant]
     Active Substance: ALBUTEROL\IPRATROPIUM
     Indication: CHRONIC OBSTRUCTIVE PULMONARY DISEASE
     Dosage: UNK UNK, AS NEEDED (IPRATROPIUM-ALBUTEROL 0.5-2.5 (3)MG/3ML, 1 (ONE) VIAL EVERY FOUR HOURS)
     Dates: start: 20170210
  19. PROMETHAZINE VC WITH CODEINE [Concomitant]
     Active Substance: CODEINE PHOSPHATE\PHENYLEPHRINE HYDROCHLORIDE\PROMETHAZINE HYDROCHLORIDE
     Indication: BRONCHITIS
     Dosage: UNK UNK, 3X/DAY (PROMETHAZINE VC/CODEINE 6.25-5-10MG/5ML, 5 MILLILITER TID, 120 MILLILITER)
     Dates: start: 20180109
  20. METFORMIN HCL [Concomitant]
     Active Substance: METFORMIN HYDROCHLORIDE
     Indication: GLUCOSE TOLERANCE IMPAIRED
     Dosage: 500 MG, DAILY
     Dates: start: 20180109
  21. LYRICA [Suspect]
     Active Substance: PREGABALIN
     Dosage: 300 MG, AS NEEDED
     Route: 048
  22. MUCINEX [Concomitant]
     Active Substance: GUAIFENESIN
     Dosage: 600 MG, AS NEEDED (600 MG, 1-2 TAB EVERY 12 HOURS AS NEEDED)
     Dates: start: 20180115
  23. PROMETHAZINE HCL [Concomitant]
     Active Substance: PROMETHAZINE HYDROCHLORIDE
     Dosage: 25 MG, AS NEEDED, (TWO TIMES DAILY)
     Dates: start: 20180129
  24. VENTOLIN HFA [Concomitant]
     Active Substance: ALBUTEROL SULFATE
     Indication: WHEEZING
  25. NYSTATIN. [Concomitant]
     Active Substance: NYSTATIN
     Indication: DERMATITIS
     Dosage: UNK UNK, 3X/DAY (100000 UNIT/GM, 1 APPLICATION)
     Dates: start: 20180109

REACTIONS (8)
  - Weight decreased [Unknown]
  - Intentional product use issue [Unknown]
  - Vomiting [Unknown]
  - Prescribed overdose [Unknown]
  - Breast cancer metastatic [Not Recovered/Not Resolved]
  - Metastases to stomach [Not Recovered/Not Resolved]
  - Diarrhoea [Unknown]
  - Drug ineffective [Unknown]
